FAERS Safety Report 8970090 (Version 1)
Quarter: 2012Q4

REPORT INFORMATION
  Report Type: 
  Country: US (occurrence: US)
  Receive Date: 20121218
  Receipt Date: 20121218
  Transmission Date: 20130627
  Serious: No
  Sender: FDA-Public Use
  Company Number: US-FOUGERA-2012FO001338

PATIENT
  Age: 89 Year
  Sex: Male
  Weight: 80.29 kg

DRUGS (12)
  1. IMIQUIMOD [Suspect]
     Indication: PRECANCEROUS CELLS PRESENT
     Route: 061
     Dates: start: 20120919
  2. WARFARIN [Concomitant]
     Indication: ATRIAL FIBRILLATION
     Dates: start: 2002
  3. WARFARIN [Concomitant]
     Indication: ATRIAL FIBRILLATION
     Dates: start: 2002
  4. TRAMADOL [Concomitant]
     Indication: PAIN IN EXTREMITY
     Dates: start: 20120914
  5. CYANOCOBALAMIN [Concomitant]
     Indication: VITAMIN SUPPLEMENTATION
  6. TRIAMTERENE [Concomitant]
     Indication: BLOOD PRESSURE
  7. TRIAMTERENE [Concomitant]
     Indication: FLUID OVERLOAD
  8. MECLIZINE                          /00072801/ [Concomitant]
     Indication: VERTIGO
  9. DIGOXIN [Concomitant]
     Indication: ATRIAL FIBRILLATION
     Dates: start: 2002
  10. DILTIAZEM [Concomitant]
     Indication: ATRIAL FIBRILLATION
     Dates: start: 2002
  11. DILTIAZEM [Concomitant]
     Indication: BLOOD PRESSURE
     Dates: start: 2002
  12. LEVOTHYROXINE [Concomitant]
     Indication: THYROID DISORDER
     Dates: start: 201205

REACTIONS (3)
  - Application site scab [Not Recovered/Not Resolved]
  - Application site pruritus [Not Recovered/Not Resolved]
  - Application site pain [Not Recovered/Not Resolved]
